FAERS Safety Report 23482728 (Version 3)
Quarter: 2024Q1

REPORT INFORMATION
  Report Type: Report from Study
  Country: KR (occurrence: KR)
  Receive Date: 20240205
  Receipt Date: 20240303
  Transmission Date: 20240410
  Serious: Yes (Hospitalization)
  Sender: FDA-Public Use
  Company Number: KR-JNJFOC-20240175405

PATIENT
  Age: 85 Year
  Sex: Male
  Weight: 59.2 kg

DRUGS (15)
  1. APALUTAMIDE [Suspect]
     Active Substance: APALUTAMIDE
     Indication: Hormone-dependent prostate cancer
     Route: 048
     Dates: start: 20231228, end: 20240125
  2. APALUTAMIDE [Suspect]
     Active Substance: APALUTAMIDE
     Route: 048
     Dates: start: 20240208
  3. CALTRATE D [CALCIUM;COLECALCIFEROL] [Concomitant]
     Indication: Osteoporosis prophylaxis
     Route: 048
     Dates: start: 20231205
  4. GASTER [Concomitant]
     Active Substance: FAMOTIDINE
     Indication: Gastrointestinal disorder therapy
     Route: 042
     Dates: start: 20240125, end: 20240202
  5. PLASMA SOLUTION A [Concomitant]
     Indication: Vitamin supplementation
     Route: 042
     Dates: start: 20240125, end: 20240125
  6. PLASMA SOLUTION A [Concomitant]
     Route: 042
     Dates: start: 20240126, end: 20240127
  7. PLASMA SOLUTION A [Concomitant]
     Route: 042
     Dates: start: 20240128, end: 20240130
  8. TASNA [Concomitant]
     Indication: Gastrointestinal disorder therapy
     Route: 048
     Dates: start: 20240201, end: 20240201
  9. TASNA [Concomitant]
     Route: 048
     Dates: start: 20240202, end: 20240202
  10. NEXIUM [Concomitant]
     Active Substance: ESOMEPRAZOLE MAGNESIUM
     Indication: Gastrointestinal disorder therapy
     Route: 030
     Dates: start: 20240202, end: 20240202
  11. ERYTHROPOIETIN [Concomitant]
     Active Substance: ERYTHROPOIETIN
     Indication: Anaemia prophylaxis
     Route: 058
     Dates: start: 20240202, end: 20240202
  12. BANAN [Concomitant]
     Active Substance: CEFPODOXIME PROXETIL
     Indication: Gastrointestinal disorder therapy
     Route: 048
     Dates: start: 20240203
  13. TETRACYCLINE HYDROCHLORIDE [Concomitant]
     Active Substance: TETRACYCLINE HYDROCHLORIDE
     Indication: Gastrointestinal disorder therapy
     Route: 048
     Dates: start: 20240203
  14. ARTEMISIA ARGYI LEAF [Concomitant]
     Active Substance: ARTEMISIA ARGYI LEAF
     Indication: Gastrointestinal disorder therapy
     Route: 048
     Dates: start: 20240203
  15. TRASPEN [Concomitant]
     Indication: Antipyresis
     Route: 048
     Dates: start: 20240203

REACTIONS (1)
  - Febrile neutropenia [Recovered/Resolved]

NARRATIVE: CASE EVENT DATE: 20240125
